FAERS Safety Report 11749605 (Version 3)
Quarter: 2016Q1

REPORT INFORMATION
  Report Type: Spontaneous
  Country: BE (occurrence: BE)
  Receive Date: 20151118
  Receipt Date: 20160302
  Transmission Date: 20160525
  Serious: Yes (Death, Hospitalization, Other)
  Sender: FDA-Public Use
  Company Number: BE-AMGEN-BELSP2015121074

PATIENT
  Age: 91 Year
  Sex: Female

DRUGS (1)
  1. MIMPARA [Suspect]
     Active Substance: CINACALCET HYDROCHLORIDE
     Indication: PRODUCT USED FOR UNKNOWN INDICATION
     Dosage: 60 MG, QD
     Route: 048

REACTIONS (5)
  - Hospitalisation [Recovered/Resolved]
  - Femur fracture [Unknown]
  - Death [Fatal]
  - Coma [Unknown]
  - Fall [Unknown]

NARRATIVE: CASE EVENT DATE: 20151103
